FAERS Safety Report 8811209 (Version 1)
Quarter: 2012Q4

REPORT INFORMATION
  Report Type: 
  Country: RU (occurrence: RU)
  Receive Date: 20120927
  Receipt Date: 20120927
  Transmission Date: 20130627
  Serious: Yes (Death)
  Sender: FDA-Public Use
  Company Number: PHHY2012RU083375

PATIENT

DRUGS (1)
  1. LEPONEX [Suspect]
     Route: 048

REACTIONS (3)
  - Death [Fatal]
  - Toxicity to various agents [Unknown]
  - Feeling cold [Unknown]
